FAERS Safety Report 21739586 (Version 2)
Quarter: 2022Q4

REPORT INFORMATION
  Report Type: Report from Study
  Country: JP (occurrence: JP)
  Receive Date: 20221216
  Receipt Date: 20221222
  Transmission Date: 20230113
  Serious: Yes (Other)
  Sender: FDA-Public Use
  Company Number: JP-MYLANLABS-2022M1139438

PATIENT
  Age: 59 Year
  Sex: Male

DRUGS (8)
  1. CARBOPLATIN [Suspect]
     Active Substance: CARBOPLATIN
     Indication: Keratinising squamous cell carcinoma of nasopharynx
     Dosage: UNK
     Route: 065
  2. CARBOPLATIN [Suspect]
     Active Substance: CARBOPLATIN
     Indication: Metastases to lung
  3. CISPLATIN [Suspect]
     Active Substance: CISPLATIN
     Indication: Keratinising squamous cell carcinoma of nasopharynx
     Dosage: UNK
     Route: 065
  4. CISPLATIN [Suspect]
     Active Substance: CISPLATIN
     Indication: Metastases to lung
  5. FLUOROURACIL [Suspect]
     Active Substance: FLUOROURACIL
     Indication: Keratinising squamous cell carcinoma of nasopharynx
     Dosage: UNK
     Route: 065
  6. FLUOROURACIL [Suspect]
     Active Substance: FLUOROURACIL
     Indication: Metastases to lung
  7. CETUXIMAB [Suspect]
     Active Substance: CETUXIMAB
     Indication: Keratinising squamous cell carcinoma of nasopharynx
     Dosage: 250 MILLIGRAM/SQ. METER, QW, RECEIVED TOTAL 17 DOSES
     Route: 065
  8. CETUXIMAB [Suspect]
     Active Substance: CETUXIMAB
     Indication: Metastases to lung
     Dosage: 500 MILLIGRAM/SQ. METER, BIWEEKLY, RECEIVED TOTAL 4 DOSES
     Route: 065

REACTIONS (1)
  - Drug ineffective [Unknown]
